FAERS Safety Report 8866780 (Version 1)
Quarter: 2012Q4

REPORT INFORMATION
  Report Type: 
  Country: US (occurrence: US)
  Receive Date: 20121025
  Receipt Date: 20121025
  Transmission Date: 20130627
  Serious: No
  Sender: FDA-Public Use
  Company Number: US-AMGEN-USASP2012013306

PATIENT
  Age: 63 Year
  Sex: Male
  Weight: 99.77 kg

DRUGS (6)
  1. ENBREL [Suspect]
     Indication: PSORIASIS
     Dosage: 50 mg, qwk
     Route: 058
     Dates: start: 2002
  2. ENBREL [Suspect]
     Dosage: 50 mg, qwk
     Dates: start: 201104
  3. HUMIRA [Concomitant]
     Dosage: UNK
  4. VIAGRA [Concomitant]
     Dosage: 25 mg, UNK
  5. VITAMIN D /00107901/ [Concomitant]
     Dosage: UNK
  6. ALEVE [Concomitant]
     Dosage: 220 mg, UNK

REACTIONS (1)
  - Influenza like illness [Recovered/Resolved]
